FAERS Safety Report 25927964 (Version 2)
Quarter: 2025Q4

REPORT INFORMATION
  Report Type: Other
  Country: EU (occurrence: EU)
  Receive Date: 20251016
  Receipt Date: 20251111
  Transmission Date: 20260118
  Serious: Yes (Other)
  Sender: ZYDUS PHARM
  Company Number: None

PATIENT

DRUGS (5)
  1. PEMETREXED [Suspect]
     Active Substance: PEMETREXED
     Indication: Lung adenocarcinoma
     Dosage: 700 MILLIGRAM 1 TOTAL
     Route: 042
     Dates: start: 20250603, end: 20250603
  2. PEMETREXED [Suspect]
     Active Substance: PEMETREXED
     Dosage: 680 MILLIGRAM 1 TOTAL
     Route: 042
     Dates: start: 20250624, end: 20250624
  3. AMIVANTAMAB [Suspect]
     Active Substance: AMIVANTAMAB
     Indication: Lung adenocarcinoma
     Dosage: 5250 MILLIGRAM 1 TOTAL
     Route: 042
     Dates: start: 20250603, end: 20250624
  4. CARBOPLATIN [Suspect]
     Active Substance: CARBOPLATIN
     Indication: Lung adenocarcinoma
     Dosage: 470 MILLIGRAM 1 TOTAL
     Route: 042
     Dates: start: 20250603, end: 20250603
  5. CARBOPLATIN [Suspect]
     Active Substance: CARBOPLATIN
     Dosage: 470 MILLIGRAM 1 TOTAL
     Route: 042
     Dates: start: 20250624, end: 20250624

REACTIONS (6)
  - Infusion related reaction [Recovered/Resolved]
  - Asthenia [Recovering/Resolving]
  - Rash pustular [Recovering/Resolving]
  - Decreased appetite [Recovering/Resolving]
  - Mucosal inflammation [Recovered/Resolved]
  - Constipation [Recovered/Resolved]

NARRATIVE: CASE EVENT DATE: 20250603
